FAERS Safety Report 4690981-3 (Version None)
Quarter: 2005Q2

REPORT INFORMATION
  Report Type: 
  Country: None (occurrence: None)
  Receive Date: 20050610
  Receipt Date: 20050316
  Transmission Date: 20051028
  Serious: Yes (Death, Other)
  Sender: FDA-Public Use
  Company Number: A-US2005-09204

PATIENT
  Age: 62 Year
  Sex: Male

DRUGS (2)
  1. TRACLEER [Suspect]
     Indication: PULMONARY HYPERTENSION
     Dosage: 62.5 MG, BID, ORAL
     Route: 048
     Dates: start: 20040715, end: 20040723
  2. FLOLAN [Concomitant]

REACTIONS (4)
  - FATIGUE [None]
  - HYPOTENSION [None]
  - PULMONARY ARTERIAL WEDGE PRESSURE INCREASED [None]
  - RESPIRATORY FAILURE [None]
